FAERS Safety Report 17511994 (Version 1)
Quarter: 2020Q1

REPORT INFORMATION
  Report Type: Spontaneous
  Country: CA (occurrence: CA)
  Receive Date: 20200308
  Receipt Date: 20200308
  Transmission Date: 20200409
  Serious: Yes (Death, Other)
  Sender: FDA-Public Use
  Company Number: NVSC2020CA064778

PATIENT
  Age: 36 Year
  Sex: Male

DRUGS (7)
  1. DILAUDID [Concomitant]
     Active Substance: HYDROMORPHONE HYDROCHLORIDE
     Indication: PRODUCT USED FOR UNKNOWN INDICATION
     Dosage: UNK
     Route: 065
  2. SANDOSTATIN [Suspect]
     Active Substance: OCTREOTIDE ACETATE
     Indication: CARCINOID TUMOUR PULMONARY
     Dosage: 100 UG, TID (3 EVERY 1 DAYS)
     Route: 058
  3. CEFTRIAXONE SODIUM. [Suspect]
     Active Substance: CEFTRIAXONE SODIUM
     Indication: BACTERIAL INFECTION
     Dosage: UNK
     Route: 065
  4. SUTENT [Concomitant]
     Active Substance: SUNITINIB MALATE
     Indication: PRODUCT USED FOR UNKNOWN INDICATION
     Dosage: UNK
     Route: 065
  5. SANDOSTATIN LAR DEPOT [Suspect]
     Active Substance: OCTREOTIDE ACETATE
     Indication: CARCINOID TUMOUR PULMONARY
     Dosage: 40 MG, QMO (1 EVERY 1 MONTHS)
     Route: 030
  6. BISOPROLOL [Concomitant]
     Active Substance: BISOPROLOL
     Indication: NEOPLASM
     Dosage: 10 MG, QD (1 EVERY 1 DAYS)
     Route: 048
  7. NAPROXEN. [Concomitant]
     Active Substance: NAPROXEN
     Indication: PRODUCT USED FOR UNKNOWN INDICATION
     Dosage: UNK
     Route: 065

REACTIONS (23)
  - Heart rate increased [Unknown]
  - Weight decreased [Unknown]
  - Cough [Unknown]
  - Injection site pain [Unknown]
  - Erythema [Unknown]
  - Faeces soft [Unknown]
  - Muscle injury [Unknown]
  - Neoplasm of thymus [Unknown]
  - Needle issue [Unknown]
  - Tremor [Unknown]
  - Headache [Unknown]
  - Bacterial infection [Unknown]
  - Blood pressure increased [Unknown]
  - Blood pressure systolic increased [Unknown]
  - Chills [Unknown]
  - Abdominal pain upper [Unknown]
  - Death [Fatal]
  - Influenza [Unknown]
  - Neutrophil count decreased [Unknown]
  - Blood pressure diastolic increased [Unknown]
  - Chest pain [Unknown]
  - Pericarditis [Unknown]
  - Hypersensitivity [Unknown]
